FAERS Safety Report 23559703 (Version 1)
Quarter: 2024Q1

REPORT INFORMATION
  Report Type: Spontaneous
  Country: US (occurrence: US)
  Receive Date: 20240223
  Receipt Date: 20240223
  Transmission Date: 20240409
  Serious: Yes (Hospitalization)
  Sender: FDA-Public Use
  Company Number: US-STERISCIENCE B.V.-2024-ST-000142

PATIENT
  Age: 20 Year
  Sex: Female

DRUGS (16)
  1. MIDAZOLAM [Suspect]
     Active Substance: MIDAZOLAM
     Indication: Behaviour disorder
     Dosage: UNK
     Route: 065
  2. MIDAZOLAM [Suspect]
     Active Substance: MIDAZOLAM
     Indication: Psychomotor hyperactivity
  3. MIDAZOLAM [Suspect]
     Active Substance: MIDAZOLAM
     Indication: Hyperkinesia
  4. MIDAZOLAM [Suspect]
     Active Substance: MIDAZOLAM
     Indication: Muscle spasms
  5. RISPERIDONE [Suspect]
     Active Substance: RISPERIDONE
     Indication: Psychomotor hyperactivity
     Dosage: UNK
     Route: 065
  6. RISPERIDONE [Suspect]
     Active Substance: RISPERIDONE
     Indication: Behaviour disorder
  7. RISPERIDONE [Suspect]
     Active Substance: RISPERIDONE
     Indication: Hyperkinesia
  8. RISPERIDONE [Suspect]
     Active Substance: RISPERIDONE
     Indication: Muscle spasms
  9. DIAZEPAM [Suspect]
     Active Substance: DIAZEPAM
     Indication: Hyperkinesia
     Dosage: UNK
     Route: 065
  10. DIAZEPAM [Suspect]
     Active Substance: DIAZEPAM
     Indication: Muscle spasms
  11. DIAZEPAM [Suspect]
     Active Substance: DIAZEPAM
     Indication: Behaviour disorder
  12. DIAZEPAM [Suspect]
     Active Substance: DIAZEPAM
     Indication: Psychomotor hyperactivity
  13. DEXMEDETOMIDINE [Suspect]
     Active Substance: DEXMEDETOMIDINE
     Indication: Hyperkinesia
     Dosage: UNK
     Route: 065
  14. DEXMEDETOMIDINE [Suspect]
     Active Substance: DEXMEDETOMIDINE
     Indication: Muscle spasms
  15. DEXMEDETOMIDINE [Suspect]
     Active Substance: DEXMEDETOMIDINE
     Indication: Behaviour disorder
  16. DEXMEDETOMIDINE [Suspect]
     Active Substance: DEXMEDETOMIDINE
     Indication: Psychomotor hyperactivity

REACTIONS (2)
  - Condition aggravated [Unknown]
  - Drug ineffective for unapproved indication [Unknown]
